FAERS Safety Report 5455999-1 (Version None)
Quarter: 2007Q3

REPORT INFORMATION
  Report Type: 
  Country: None (occurrence: None)
  Receive Date: 20070918
  Receipt Date: 20070228
  Transmission Date: 20080115
  Serious: Yes (Hospitalization)
  Sender: FDA-Public Use
  Company Number: US-ASTRAZENECA-2006UW23496

PATIENT
  Sex: Female
  Weight: 79.5 kg

DRUGS (6)
  1. SEROQUEL [Suspect]
     Indication: MENTAL DISORDER
     Route: 048
     Dates: end: 20060501
  2. ABILIFY [Concomitant]
     Dates: start: 20050101
  3. CLOZARIL [Concomitant]
     Dates: start: 19990101
  4. RISPERDAL [Concomitant]
  5. STELAZINE [Concomitant]
  6. ZYPREXA [Concomitant]

REACTIONS (1)
  - DIABETES MELLITUS [None]
